FAERS Safety Report 11059703 (Version 5)
Quarter: 2016Q2

REPORT INFORMATION
  Report Type: Report from Study
  Country: DE (occurrence: DE)
  Receive Date: 20150423
  Receipt Date: 20160607
  Transmission Date: 20160815
  Serious: Yes (Hospitalization)
  Sender: FDA-Public Use
  Company Number: DE-B.I. PHARMACEUTICALS,INC./RIDGEFIELD-2015-BI-20510BI

PATIENT
  Age: 75 Year
  Sex: Female
  Weight: 90 kg

DRUGS (2)
  1. PRADAXA [Suspect]
     Active Substance: DABIGATRAN ETEXILATE MESYLATE
     Dosage: 150 MG
     Route: 048
     Dates: start: 20140820
  2. PRADAXA [Suspect]
     Active Substance: DABIGATRAN ETEXILATE MESYLATE
     Indication: ATRIAL FIBRILLATION
     Dosage: 150 MG
     Route: 048
     Dates: start: 20140620

REACTIONS (6)
  - Chest pain [Recovered/Resolved]
  - Chest discomfort [Recovered/Resolved]
  - Atrial fibrillation [Recovered/Resolved]
  - Atrial fibrillation [Recovered/Resolved]
  - Acute myocardial infarction [Recovered/Resolved]
  - Acute myocardial infarction [Recovered/Resolved]

NARRATIVE: CASE EVENT DATE: 20140929
